FAERS Safety Report 7961352-9 (Version None)
Quarter: 2011Q4

REPORT INFORMATION
  Report Type: 
  Country: None (occurrence: None)
  Receive Date: 20111202
  Receipt Date: 20111202
  Transmission Date: 20120403
  Serious: No
  Sender: FDA-Public Use
  Company Number: None

PATIENT
  Age: 61 Year
  Sex: Male
  Weight: 90.6 kg

DRUGS (2)
  1. MEROPENEM [Suspect]
     Indication: PNEUMONIA
     Dosage: 1 GM TID IV
     Route: 042
     Dates: start: 20111105, end: 20111112
  2. VANCOMYCIN [Suspect]
     Indication: PNEUMONIA
     Dates: start: 20111005, end: 20111110

REACTIONS (8)
  - PAIN OF SKIN [None]
  - SKIN EXFOLIATION [None]
  - RASH ERYTHEMATOUS [None]
  - TOXIC EPIDERMAL NECROLYSIS [None]
  - DRUG RASH WITH EOSINOPHILIA AND SYSTEMIC SYMPTOMS [None]
  - ANGIOEDEMA [None]
  - STEVENS-JOHNSON SYNDROME [None]
  - EOSINOPHILIA [None]
